FAERS Safety Report 10740828 (Version 1)
Quarter: 2015Q1

REPORT INFORMATION
  Report Type: Spontaneous
  Country: US (occurrence: US)
  Receive Date: 20150127
  Receipt Date: 20150127
  Transmission Date: 20150721
  Serious: No
  Sender: FDA-Public Use
  Company Number: US-PFIZER INC-2015029316

PATIENT
  Sex: Male

DRUGS (17)
  1. PROTONIX [Suspect]
     Active Substance: PANTOPRAZOLE SODIUM
     Dosage: UNK
  2. SALBUTAMOL SULFATE [Suspect]
     Active Substance: ALBUTEROL SULFATE
     Dosage: UNK
  3. SPIRONOLACTONE. [Suspect]
     Active Substance: SPIRONOLACTONE
     Dosage: UNK
  4. COUMADINE [Suspect]
     Active Substance: WARFARIN SODIUM
     Dosage: UNK
  5. IRON [Suspect]
     Active Substance: IRON
     Dosage: UNK
  6. LISINOPRIL. [Suspect]
     Active Substance: LISINOPRIL
     Dosage: UNK
  7. CYMBALTA [Suspect]
     Active Substance: DULOXETINE HYDROCHLORIDE
     Dosage: UNK
  8. VITAMIN D [Suspect]
     Active Substance: CHOLECALCIFEROL
     Dosage: UNK
  9. KCL [Suspect]
     Active Substance: POTASSIUM CHLORIDE
     Dosage: UNK
  10. HYDROCHLOROTHIAZIDE. [Suspect]
     Active Substance: HYDROCHLOROTHIAZIDE
     Dosage: UNK
  11. NORCO [Suspect]
     Active Substance: ACETAMINOPHEN\HYDROCODONE BITARTRATE
     Dosage: UNK
  12. HUMALOG [Suspect]
     Active Substance: INSULIN LISPRO
     Dosage: UNK
  13. LOVASTATIN. [Suspect]
     Active Substance: LOVASTATIN
     Dosage: UNK
  14. TORSEMIDE. [Suspect]
     Active Substance: TORSEMIDE
     Dosage: UNK
  15. COLACE [Suspect]
     Active Substance: DOCUSATE SODIUM
     Dosage: UNK
  16. LANTUS [Suspect]
     Active Substance: INSULIN GLARGINE
     Dosage: UNK
  17. PROAIR /00972202/ [Suspect]
     Active Substance: FLUTICASONE PROPIONATE

REACTIONS (1)
  - Drug hypersensitivity [Unknown]
